FAERS Safety Report 8558584-8 (Version None)
Quarter: 2012Q3

REPORT INFORMATION
  Report Type: 
  Country: None (occurrence: None)
  Receive Date: 20120801
  Receipt Date: 20120718
  Transmission Date: 20120928
  Serious: Yes (Death, Other)
  Sender: FDA-Public Use
  Company Number: PHHY2012JP059312

PATIENT
  Age: 53 Year
  Sex: Female

DRUGS (6)
  1. AREDIA [Suspect]
     Indication: METASTASES TO BONE
     Dosage: 45 MG/ MONTH
     Dates: start: 20041101, end: 20050301
  2. PREDNISOLONE [Concomitant]
     Dates: start: 20080701
  3. PREDNISOLONE [Concomitant]
     Indication: RHEUMATOID ARTHRITIS
     Dosage: 10 MG, UNK
     Route: 048
  4. OXYGEN [Concomitant]
  5. ZOMETA [Suspect]
     Indication: METASTASES TO BONE
     Dosage: 4 MG/ MONTH
     Route: 041
     Dates: start: 20060401
  6. AREDIA [Suspect]
     Dosage: 90 MG/ MONTH
     Dates: start: 20050301, end: 20060401

REACTIONS (11)
  - ARTHRITIS BACTERIAL [None]
  - RENAL TUBULAR NECROSIS [None]
  - DEATH [None]
  - CARDIOVASCULAR DISORDER [None]
  - PNEUMONIA ASPIRATION [None]
  - OSTEONECROSIS OF JAW [None]
  - GASTRIC HAEMORRHAGE [None]
  - OSTEOMYELITIS [None]
  - ENDOCARDITIS [None]
  - SEPSIS [None]
  - PERIODONTITIS [None]
